FAERS Safety Report 4609573-7 (Version None)
Quarter: 2005Q1

REPORT INFORMATION
  Report Type: 
  Country: None (occurrence: None)
  Receive Date: 20050314
  Receipt Date: 20050314
  Transmission Date: 20050727
  Serious: Yes (Death)
  Sender: FDA-Public Use
  Company Number: None

PATIENT
  Sex: Male
  Weight: 39.78 kg

DRUGS (30)
  1. CYTARABINE [Suspect]
     Dosage: 30-70 MG BASED ON AGE IT ON DAY 1
     Route: 039
     Dates: start: 20030425
  2. METHOTREXATE [Suspect]
     Dosage: 8-12 MG BASED ON AGE IT ON DAYS 8 AND 29
     Route: 050
     Dates: start: 20030425
  3. VINCRISTINE [Suspect]
     Dosage: 1.5MG/M2 IVP ON DAYS 1, 8, 15, 22.
     Route: 042
     Dates: start: 20030423
  4. DEXAMETHASONE [Suspect]
     Dosage: 5 MG/M2 BID ON DAYS 1-10 WITH TAPER DAYS 11-14
     Dates: start: 20030425
  5. PEG ASPARAGINASE [Suspect]
     Dosage: 2500 IU/M2 IM ON DAYS 2, 8, 15, 22 SEE IMAGE
  6. IDARUBICIN HCL [Suspect]
     Dosage: 10 MG/M2 IV OVER 6 HR QD ON DAYS 1 + 2
     Route: 042
  7. ETOPOSIDE [Suspect]
     Dosage: 100 MG/M2 IV OVER 2 HR QD ON DAYS 1-5
     Route: 042
  8. CYCLOPHOSPHAMIDE [Suspect]
     Dosage: 440 MG/M2 IV OVER  2 HR  30 MIN QD ON DAYS 1-5
     Route: 042
  9. G-CSF [Suspect]
     Dosage: 5 MCG/KG SC QD STARTING ON DAY 6 UNITL ANC}1500 /MET FOR 2 DAYS
     Route: 058
  10. LEUCOVORIN [Suspect]
     Dosage: 15 MG/M2 IV Q 6 HOURS , X 3 DOSES
     Route: 042
  11. CYTARABINE [Suspect]
     Dosage: 3000 MG/M2 IV OVER 3 HR Q 12 HR FOR 4 DOSES ON DAYS 1+2, 8+9
     Route: 042
  12. ELSPAR [Suspect]
     Dosage: 6000 IU /M2 IM ON DAYS 2+9
     Route: 030
  13. G-CSF [Suspect]
     Dosage: 5 MCG/KG SC QD STARTING ON DAY 10} 24 HR AFTER THE COMPLETION OF THE LAST DOSE OF CYTARBIN, UNTIL  A
     Route: 058
  14. AMITRIPTYLINE [Concomitant]
  15. BENADRYL [Concomitant]
  16. CEFEPIME [Concomitant]
  17. DEPAKOTE [Concomitant]
  18. DIFLUCAN [Concomitant]
  19. FORTAZ [Concomitant]
  20. DIFLUCAN [Concomitant]
  21. FORTAZ [Concomitant]
  22. GENTAMICIN [Concomitant]
  23. MORPHINE [Concomitant]
  24. MYLICON [Concomitant]
  25. PHENERGAN [Concomitant]
  26. TRIMETHOPRIM [Concomitant]
  27. TYLENOL (CAPLET) [Concomitant]
  28. ZANTAC [Concomitant]
  29. ZOFRAN [Concomitant]
  30. ZOLOFT [Concomitant]

REACTIONS (14)
  - ABDOMINAL PAIN [None]
  - ASPERGILLOSIS [None]
  - BODY TEMPERATURE INCREASED [None]
  - BRADYCARDIA [None]
  - CAECITIS [None]
  - CARDIO-RESPIRATORY ARREST [None]
  - CATHETER RELATED INFECTION [None]
  - CLOSTRIDIUM COLITIS [None]
  - ENTEROCOCCAL INFECTION [None]
  - HAEMOPTYSIS [None]
  - HYPOTENSION [None]
  - MUSCULAR WEAKNESS [None]
  - NEUTROPENIA [None]
  - PNEUMONITIS [None]
